FAERS Safety Report 16278815 (Version 1)
Quarter: 2019Q2

REPORT INFORMATION
  Report Type: Spontaneous
  Country: JP (occurrence: JP)
  Receive Date: 20190506
  Receipt Date: 20190506
  Transmission Date: 20190711
  Serious: Yes (Other)
  Sender: FDA-Public Use
  Company Number: JP-EX USA HOLDINGS-EXHL20192239

PATIENT
  Age: 76 Year
  Sex: Male

DRUGS (3)
  1. METRONIDAZOLE. [Suspect]
     Active Substance: METRONIDAZOLE
     Indication: OSTEOMYELITIS
     Dosage: 1500 MG
     Route: 048
  2. CIPROFLOXACIN. [Concomitant]
     Active Substance: CIPROFLOXACIN
     Indication: OSTEOMYELITIS
     Dosage: 400 MG
     Route: 065
  3. INSULIN [Concomitant]
     Active Substance: INSULIN NOS
     Indication: TYPE 2 DIABETES MELLITUS
     Dosage: UNKNOWN
     Route: 065

REACTIONS (11)
  - Inhibitory drug interaction [Recovered/Resolved]
  - Decreased appetite [Recovered/Resolved]
  - Ataxia [Recovered/Resolved]
  - Vitamin B1 deficiency [Recovered/Resolved]
  - Dizziness [Recovered/Resolved]
  - Nystagmus [Recovered/Resolved]
  - Nausea [Recovered/Resolved]
  - Ophthalmoplegia [Recovered/Resolved]
  - Toxic encephalopathy [Recovered/Resolved]
  - Depression [Recovered/Resolved]
  - Dysarthria [Recovered/Resolved]
